FAERS Safety Report 8524412-X (Version None)
Quarter: 2012Q3

REPORT INFORMATION
  Report Type: 
  Country: None (occurrence: None)
  Receive Date: 20120720
  Receipt Date: 20120711
  Transmission Date: 20120928
  Serious: Yes (Hospitalization)
  Sender: FDA-Public Use
  Company Number: CA-AMGEN-CANCT2012035775

PATIENT
  Age: 44 Year
  Sex: Female
  Weight: 55.3 kg

DRUGS (32)
  1. KEFLEX [Concomitant]
     Indication: INFECTION PROPHYLAXIS
     Dosage: 500 MG, QID
     Route: 048
     Dates: start: 20120322, end: 20120429
  2. CEFTRIAXONE [Concomitant]
     Indication: INFECTION PROPHYLAXIS
     Dosage: 1 G, TID
     Route: 042
     Dates: start: 20120321, end: 20120322
  3. MAXERAN [Concomitant]
     Indication: NAUSEA
     Dosage: 10 MG, UNK
     Route: 042
     Dates: start: 20120604, end: 20120604
  4. CHLORPROMAZINE HCL [Concomitant]
     Indication: HEADACHE
     Dosage: 12.5 MG, UNK
     Route: 042
     Dates: start: 20120605, end: 20120605
  5. NOLVADEX [Concomitant]
     Dosage: UNK
     Dates: start: 20120504, end: 20120604
  6. MAXIFER [Concomitant]
     Dosage: UNK
     Dates: start: 20120501
  7. GRAVOL TAB [Concomitant]
     Indication: NAUSEA
     Dosage: 50 MG, PRN
     Route: 042
     Dates: start: 20120321, end: 20120604
  8. MOTRIN [Concomitant]
     Indication: HEADACHE
     Dosage: 400 MG, QD
     Route: 048
     Dates: start: 20120601, end: 20120603
  9. DENOSUMAB [Suspect]
     Indication: BREAST CANCER
     Dosage: 120 MG, UNK
     Route: 058
     Dates: start: 20110811, end: 20120314
  10. CYCLOPHOSPHAMIDE W/EPIRUBICIN/FLUOROURACIL [Concomitant]
     Dosage: UNK
     Dates: start: 20111104, end: 20120116
  11. TYLENOL [Concomitant]
     Indication: HEADACHE
     Dosage: 1000 MG, QD
     Route: 048
     Dates: start: 20110831
  12. ZOLADEX [Concomitant]
     Indication: BREAST CANCER
     Dosage: UNK
     Dates: start: 20120507
  13. ATIVAN [Concomitant]
     Indication: CONVULSION
  14. PROPOFOL [Concomitant]
     Indication: ANAESTHESIA
     Dosage: 150 MG, UNK
     Route: 042
     Dates: start: 20120321, end: 20120321
  15. DILAUDID [Concomitant]
     Indication: BREAST PAIN
     Dosage: 1 MG, PRN
     Route: 048
     Dates: start: 20120321, end: 20120413
  16. PROCHLORPERAZINE [Concomitant]
     Indication: NAUSEA
     Dosage: 10 MG, UNK
     Route: 042
     Dates: start: 20120605, end: 20120605
  17. NAPROXEN [Concomitant]
     Indication: HEADACHE
     Dosage: 375 MG, UNK
     Route: 048
     Dates: start: 20120605, end: 20120606
  18. CALCIUM [Concomitant]
     Dosage: 600 MG, UNK
     Route: 048
     Dates: start: 20110811, end: 20120620
  19. TYLENOL [Concomitant]
     Indication: BREAST PAIN
  20. ROCURONIUM BROMIDE [Concomitant]
     Indication: ANAESTHESIA
     Route: 042
     Dates: start: 20120321, end: 20120321
  21. MORPHINE SULFATE [Concomitant]
     Indication: BREAST PAIN
     Dosage: 5 MG, PRN
     Route: 042
     Dates: start: 20120321, end: 20120605
  22. VERSED [Concomitant]
     Indication: ANAESTHESIA
     Dosage: 1 MG, UNK
     Route: 042
     Dates: start: 20120321, end: 20120321
  23. XYLOCAINE [Concomitant]
     Indication: ANAESTHESIA
     Dosage: 40 MG, UNK
     Route: 042
     Dates: start: 20120321, end: 20120321
  24. CEPHALEXIN [Concomitant]
     Indication: INFECTION PROPHYLAXIS
     Dosage: 500 MG, QID
     Route: 048
     Dates: start: 20120423, end: 20120430
  25. HEPARIN [Concomitant]
     Indication: THROMBOSIS PROPHYLAXIS
     Dosage: 5000 IU, UNK
     Route: 058
     Dates: start: 20120321, end: 20120607
  26. PACLITAXEL [Concomitant]
     Dosage: UNK
     Dates: start: 20110812, end: 20111028
  27. VITAMIN D [Concomitant]
     Dosage: 200 IU, UNK
     Route: 048
     Dates: start: 20110811, end: 20120620
  28. ATIVAN [Concomitant]
     Indication: INSOMNIA
     Dosage: 1 MG, UNK
     Dates: start: 20110817, end: 20120605
  29. SUFENTANIL CITRATE [Concomitant]
     Indication: ANAESTHESIA
     Route: 042
     Dates: start: 20120321, end: 20120321
  30. LOPRESSOR [Concomitant]
     Indication: HYPERTENSION
     Dosage: 5 MG, UNK
     Route: 042
     Dates: start: 20120321, end: 20120321
  31. LACTATED RINGER'S [Concomitant]
     Indication: PROPHYLAXIS AGAINST DEHYDRATION
     Dosage: UNK
     Route: 042
     Dates: start: 20120321, end: 20120322
  32. HEPARIN [Concomitant]
     Indication: CEREBRAL VENOUS THROMBOSIS

REACTIONS (1)
  - CEREBRAL VENOUS THROMBOSIS [None]
